FAERS Safety Report 9772560 (Version 2)
Quarter: 2013Q4

REPORT INFORMATION
  Report Type: Report from Study
  Country: PR (occurrence: PR)
  Receive Date: 20131219
  Receipt Date: 20131219
  Transmission Date: 20140711
  Serious: Yes (Hospitalization, Other)
  Sender: FDA-Public Use
  Company Number: PR-ABBVIE-13P-131-1144882-00

PATIENT
  Age: 68 Year
  Sex: Female
  Weight: 63.56 kg

DRUGS (12)
  1. HUMIRA [Suspect]
     Indication: RHEUMATOID ARTHRITIS
     Route: 058
     Dates: start: 2008, end: 201308
  2. HUMIRA [Suspect]
     Route: 058
     Dates: start: 201310, end: 201310
  3. PREDNISONE [Concomitant]
     Indication: RHEUMATOID ARTHRITIS
     Route: 048
  4. PROVENTIL [Concomitant]
     Indication: ASTHMA
     Route: 055
  5. PROVENTIL [Concomitant]
     Indication: ASTHMA
     Route: 055
  6. ADVAIR [Concomitant]
     Indication: ASTHMA
     Route: 055
  7. ZYRTEC [Concomitant]
     Indication: HYPERSENSITIVITY
     Route: 048
  8. AMBIEN [Concomitant]
     Indication: INSOMNIA
     Route: 048
  9. B COMPLEX [Concomitant]
     Indication: PRODUCT USED FOR UNKNOWN INDICATION
     Route: 048
  10. VITAMIN C [Concomitant]
     Indication: PRODUCT USED FOR UNKNOWN INDICATION
     Route: 048
  11. RANITIDINE [Concomitant]
     Indication: GASTRIC DISORDER
     Route: 048
  12. TRAMADOL [Concomitant]
     Indication: PAIN
     Route: 048
     Dates: start: 20130927

REACTIONS (6)
  - Benign renal neoplasm [Recovered/Resolved]
  - Colitis ulcerative [Recovered/Resolved]
  - Renal cancer [Recovered/Resolved]
  - Hypertension [Unknown]
  - Chest pain [Recovered/Resolved]
  - Pain in jaw [Recovered/Resolved]
